FAERS Safety Report 4894063-7 (Version None)
Quarter: 2006Q1

REPORT INFORMATION
  Report Type: 
  Country: None (occurrence: None)
  Receive Date: 20060127
  Receipt Date: 20050606
  Transmission Date: 20060701
  Serious: No
  Sender: FDA-Public Use
  Company Number: US-GLAXOSMITHKLINE-A0561369A

PATIENT
  Age: 52 Year
  Sex: Female

DRUGS (3)
  1. BUPROPION [Suspect]
     Indication: ANXIETY
     Dosage: 150MG PER DAY
     Route: 048
     Dates: start: 20050518
  2. PREMARIN [Concomitant]
  3. AMOXICILLIN [Concomitant]

REACTIONS (1)
  - PRURITUS [None]
